FAERS Safety Report 9764572 (Version 1)
Quarter: 2013Q4

REPORT INFORMATION
  Report Type: Spontaneous
  Country: ES (occurrence: ES)
  Receive Date: 20131217
  Receipt Date: 20131217
  Transmission Date: 20140711
  Serious: Yes (Other)
  Sender: FDA-Public Use
  Company Number: ES-ROCHE-1318170

PATIENT
  Age: 70 Year
  Sex: Male

DRUGS (6)
  1. ZELBORAF [Suspect]
     Indication: MALIGNANT MELANOMA
     Route: 048
     Dates: start: 20131024
  2. RANITIDINE [Concomitant]
     Route: 065
  3. DICLOFENAC [Concomitant]
  4. FORTECORTIN [Concomitant]
     Route: 065
  5. LORAZEPAM [Concomitant]
     Route: 065
  6. CLORAZEPATE DIPOTASSIUM [Concomitant]
     Route: 065

REACTIONS (3)
  - Hyponatraemia [Recovered/Resolved]
  - Tachycardia [Recovered/Resolved]
  - Rash [Recovered/Resolved]
